FAERS Safety Report 25183092 (Version 2)
Quarter: 2025Q2

REPORT INFORMATION
  Report Type: Spontaneous
  Country: KR (occurrence: KR)
  Receive Date: 20250410
  Receipt Date: 20250516
  Transmission Date: 20250717
  Serious: Yes (Other)
  Sender: MYLAN
  Company Number: KR-MYLANLABS-2025M1029102

PATIENT
  Sex: Female
  Weight: 75.6 kg

DRUGS (24)
  1. NEURONTIN [Suspect]
     Active Substance: GABAPENTIN
     Indication: Radiculopathy
     Dosage: 2 DOSAGE FORM, QD
     Dates: start: 20230307, end: 20230307
  2. NEURONTIN [Suspect]
     Active Substance: GABAPENTIN
     Dosage: 2 DOSAGE FORM, QD
     Route: 065
     Dates: start: 20230307, end: 20230307
  3. NEURONTIN [Suspect]
     Active Substance: GABAPENTIN
     Dosage: 2 DOSAGE FORM, QD
     Route: 065
     Dates: start: 20230307, end: 20230307
  4. NEURONTIN [Suspect]
     Active Substance: GABAPENTIN
     Dosage: 2 DOSAGE FORM, QD
     Dates: start: 20230307, end: 20230307
  5. ACETAMINOPHEN\TRAMADOL [Suspect]
     Active Substance: ACETAMINOPHEN\TRAMADOL
     Indication: Radiculopathy
     Dosage: 1 DOSAGE FORM, QD
     Dates: start: 20230307, end: 20230307
  6. ACETAMINOPHEN\TRAMADOL [Suspect]
     Active Substance: ACETAMINOPHEN\TRAMADOL
     Dosage: 1 DOSAGE FORM, QD
     Route: 065
     Dates: start: 20230307, end: 20230307
  7. ACETAMINOPHEN\TRAMADOL [Suspect]
     Active Substance: ACETAMINOPHEN\TRAMADOL
     Dosage: 1 DOSAGE FORM, QD
     Route: 065
     Dates: start: 20230307, end: 20230307
  8. ACETAMINOPHEN\TRAMADOL [Suspect]
     Active Substance: ACETAMINOPHEN\TRAMADOL
     Dosage: 1 DOSAGE FORM, QD
     Dates: start: 20230307, end: 20230307
  9. CELEBREX [Suspect]
     Active Substance: CELECOXIB
     Indication: Radiculopathy
     Dosage: 1 DOSAGE FORM, QD
     Dates: start: 20230307, end: 20230307
  10. CELEBREX [Suspect]
     Active Substance: CELECOXIB
     Dosage: 1 DOSAGE FORM, QD
     Route: 065
     Dates: start: 20230307, end: 20230307
  11. CELEBREX [Suspect]
     Active Substance: CELECOXIB
     Dosage: 1 DOSAGE FORM, QD
     Route: 065
     Dates: start: 20230307, end: 20230307
  12. CELEBREX [Suspect]
     Active Substance: CELECOXIB
     Dosage: 1 DOSAGE FORM, QD
     Dates: start: 20230307, end: 20230307
  13. IBUPROFEN [Suspect]
     Active Substance: IBUPROFEN
     Indication: Radiculopathy
     Dosage: 1 DOSAGE FORM, QD
     Dates: start: 20230307, end: 20230307
  14. IBUPROFEN [Suspect]
     Active Substance: IBUPROFEN
     Dosage: 1 DOSAGE FORM, QD
     Route: 065
     Dates: start: 20230307, end: 20230307
  15. IBUPROFEN [Suspect]
     Active Substance: IBUPROFEN
     Dosage: 1 DOSAGE FORM, QD
     Route: 065
     Dates: start: 20230307, end: 20230307
  16. IBUPROFEN [Suspect]
     Active Substance: IBUPROFEN
     Dosage: 1 DOSAGE FORM, QD
     Dates: start: 20230307, end: 20230307
  17. AFLOQUALONE [Suspect]
     Active Substance: AFLOQUALONE
     Indication: Radiculopathy
     Dosage: 1 DOSAGE FORM, QD
     Route: 065
     Dates: start: 20230307, end: 20230307
  18. AFLOQUALONE [Suspect]
     Active Substance: AFLOQUALONE
     Dosage: 1 DOSAGE FORM, QD
     Dates: start: 20230307, end: 20230307
  19. AFLOQUALONE [Suspect]
     Active Substance: AFLOQUALONE
     Dosage: 1 DOSAGE FORM, QD
     Dates: start: 20230307, end: 20230307
  20. AFLOQUALONE [Suspect]
     Active Substance: AFLOQUALONE
     Dosage: 1 DOSAGE FORM, QD
     Route: 065
     Dates: start: 20230307, end: 20230307
  21. AFLOQUALONE [Suspect]
     Active Substance: AFLOQUALONE
     Route: 065
  22. AFLOQUALONE [Suspect]
     Active Substance: AFLOQUALONE
  23. AFLOQUALONE [Suspect]
     Active Substance: AFLOQUALONE
  24. AFLOQUALONE [Suspect]
     Active Substance: AFLOQUALONE
     Route: 065

REACTIONS (3)
  - Hypotension [Recovered/Resolved]
  - Pruritus [Recovered/Resolved]
  - Dizziness [Recovered/Resolved]

NARRATIVE: CASE EVENT DATE: 20230307
